FAERS Safety Report 18912989 (Version 2)
Quarter: 2021Q2

REPORT INFORMATION
  Report Type: Report from Study
  Country: NO (occurrence: NO)
  Receive Date: 20210219
  Receipt Date: 20210417
  Transmission Date: 20210717
  Serious: Yes (Hospitalization)
  Sender: FDA-Public Use
  Company Number: NO-ROCHE-2765025

PATIENT
  Age: 37 Year
  Sex: Female
  Weight: 58.5 kg

DRUGS (12)
  1. PARACETAMOL [Concomitant]
     Active Substance: ACETAMINOPHEN
     Indication: MYALGIA
     Route: 048
     Dates: start: 20201216
  2. OXAZEPAM. [Concomitant]
     Active Substance: OXAZEPAM
     Indication: ANXIETY
     Route: 048
     Dates: start: 20191003
  3. ESTALIS [Concomitant]
     Active Substance: ESTRADIOL\NORETHINDRONE ACETATE
     Indication: MENOPAUSE
     Dosage: 50 MG/24 HR
     Route: 062
     Dates: start: 20200228
  4. CORSODYL [Concomitant]
     Active Substance: CHLORHEXIDINE GLUCONATE
     Route: 048
     Dates: start: 20210104
  5. IBUPROFEN. [Concomitant]
     Active Substance: IBUPROFEN
     Indication: MYALGIA
     Route: 048
     Dates: start: 20210104
  6. FAMOTIDINE. [Concomitant]
     Active Substance: FAMOTIDINE
     Route: 048
     Dates: start: 20201215
  7. DEXAMETHASONE. [Concomitant]
     Active Substance: DEXAMETHASONE
     Route: 042
     Dates: start: 20201215
  8. PACLITAXEL. [Suspect]
     Active Substance: PACLITAXEL
     Indication: CERVIX CARCINOMA RECURRENT
     Dosage: 306 MG
     Route: 042
     Dates: start: 20201215, end: 20210125
  9. AKYNZEO [Concomitant]
     Active Substance: NETUPITANT\PALONOSETRON HYDROCHLORIDE
     Route: 048
     Dates: start: 20201215
  10. CETRIZINE [Concomitant]
     Active Substance: CETIRIZINE HYDROCHLORIDE
     Route: 048
     Dates: start: 20201215
  11. CARBOPLATIN. [Suspect]
     Active Substance: CARBOPLATIN
     Indication: CERVIX CARCINOMA RECURRENT
     Dosage: AUC 5
     Route: 042
     Dates: start: 20201215, end: 20210125
  12. BEVACIZUMAB. [Suspect]
     Active Substance: BEVACIZUMAB
     Indication: CERVIX CARCINOMA RECURRENT
     Dosage: 878 MG
     Route: 042
     Dates: start: 20201215, end: 20210125

REACTIONS (1)
  - Pyrexia [Recovered/Resolved]

NARRATIVE: CASE EVENT DATE: 20210204
